FAERS Safety Report 4827539-9 (Version None)
Quarter: 2005Q4

REPORT INFORMATION
  Report Type: 
  Country: None (occurrence: None)
  Receive Date: 20051114
  Receipt Date: 20051102
  Transmission Date: 20060501
  Serious: Yes (Other)
  Sender: FDA-Public Use
  Company Number: JP-BRISTOL-MYERS SQUIBB COMPANY-13175203

PATIENT
  Age: 71 Year
  Sex: Male

DRUGS (3)
  1. ENDOXAN [Suspect]
     Indication: LYMPHOMA
     Dates: start: 20000101
  2. VP-16 [Suspect]
     Indication: LYMPHOMA
  3. PREDONINE [Concomitant]

REACTIONS (2)
  - GASTRIC CANCER [None]
  - TREATMENT RELATED SECONDARY MALIGNANCY [None]
